FAERS Safety Report 18459510 (Version 2)
Quarter: 2020Q4

REPORT INFORMATION
  Report Type: Spontaneous
  Country: VN (occurrence: VN)
  Receive Date: 20201103
  Receipt Date: 20201106
  Transmission Date: 20210114
  Serious: Yes (Hospitalization, Other)
  Sender: FDA-Public Use
  Company Number: VN-BAYER-2020-237547

PATIENT
  Sex: Female

DRUGS (3)
  1. ULTRAVIST [Suspect]
     Active Substance: IOPROMIDE
     Indication: COMPUTERISED TOMOGRAM ABDOMEN
     Dosage: UNK UNK, ONCE
     Route: 042
     Dates: start: 20200910
  2. OXYGEN. [Concomitant]
     Active Substance: OXYGEN
  3. ADRENALIN (EPINEPHRINE) [Concomitant]
     Active Substance: EPINEPHRINE
     Dosage: 1 MG

REACTIONS (4)
  - Rash erythematous [Recovered/Resolved]
  - Pruritus [Recovered/Resolved]
  - Conjunctivitis [Recovered/Resolved]
  - Dyspnoea [Recovered/Resolved]

NARRATIVE: CASE EVENT DATE: 20200910
